FAERS Safety Report 7451926-6 (Version None)
Quarter: 2011Q2

REPORT INFORMATION
  Report Type: 
  Country: None (occurrence: None)
  Receive Date: 20110422
  Receipt Date: 20110404
  Transmission Date: 20111010
  Serious: Yes (Hospitalization)
  Sender: FDA-Public Use
  Company Number: CIO11006747

PATIENT
  Age: 19 Year
  Sex: Female

DRUGS (3)
  1. MINOCYCLINE HCL [Concomitant]
  2. LAMOTRIGINE [Concomitant]
  3. DEXTROMETHORPHAN HYDROBROMIDE [Suspect]
     Dosage: ORAL
     Route: 048

REACTIONS (11)
  - TREMOR [None]
  - AMNESIA [None]
  - SINUS TACHYCARDIA [None]
  - FLAT AFFECT [None]
  - CONFUSIONAL STATE [None]
  - TONIC CLONIC MOVEMENTS [None]
  - SYNCOPE [None]
  - CONVULSION [None]
  - NYSTAGMUS [None]
  - DRUG ABUSE [None]
  - DRUG LEVEL INCREASED [None]
